FAERS Safety Report 6938440-9 (Version None)
Quarter: 2010Q3

REPORT INFORMATION
  Report Type: 
  Country: None (occurrence: None)
  Receive Date: 20100824
  Receipt Date: 20100812
  Transmission Date: 20110219
  Serious: Yes (Death, Other)
  Sender: FDA-Public Use
  Company Number: US-GENZYME-CLOF-1000952

PATIENT
  Sex: Female
  Weight: 9.3 kg

DRUGS (20)
  1. CLOLAR [Suspect]
     Indication: ACUTE MYELOID LEUKAEMIA
     Dosage: 19.8 MG, QDX5
     Route: 042
     Dates: start: 20090713, end: 20090717
  2. 03-OKT [Suspect]
     Indication: ACUTE MYELOID LEUKAEMIA
     Dosage: 19.78 MG, QD TAPERED UP THEN DOWN
     Route: 065
     Dates: start: 20090712, end: 20090807
  3. THIOTEPA [Suspect]
     Indication: ACUTE MYELOID LEUKAEMIA
     Dosage: 43.5 MG, BID
     Route: 065
     Dates: start: 20090718, end: 20090718
  4. MELPHALAN [Suspect]
     Indication: ACUTE MYELOID LEUKAEMIA
     Dosage: 26.4 MG, QD
     Route: 065
     Dates: start: 20090719, end: 20090720
  5. RITUXIMAB [Suspect]
     Indication: ACUTE MYELOID LEUKAEMIA
     Dosage: 16.5 MG, QD
     Route: 065
     Dates: start: 20090720, end: 20090720
  6. GANCICLOVIR [Concomitant]
     Indication: ANTIVIRAL PROPHYLAXIS
     Dosage: 45 MG, UNK
     Route: 042
     Dates: start: 20090804, end: 20090818
  7. GANCICLOVIR [Concomitant]
     Dosage: 50 MG, UNK
     Route: 042
     Dates: start: 20090826, end: 20090912
  8. MICAFUNGIN [Concomitant]
     Indication: ANTIFUNGAL PROPHYLAXIS
     Dosage: 26 MG, UNK
     Route: 042
     Dates: start: 20090815, end: 20090912
  9. PENTAMIDINE ISETHIONATE [Concomitant]
     Indication: PROPHYLAXIS
     Dosage: 37 MG, UNK
     Route: 042
     Dates: start: 20090904, end: 20090912
  10. IMMUNE GLOBULIN NOS [Concomitant]
     Indication: PRODUCT USED FOR UNKNOWN INDICATION
     Dosage: 5 G, UNK
     Route: 042
     Dates: start: 20090817, end: 20090912
  11. FOSCARNET [Concomitant]
     Indication: ANTIVIRAL PROPHYLAXIS
     Dosage: 820 MG, UNK
     Route: 042
     Dates: start: 20090818, end: 20090826
  12. MYCOPHENOLATE MOFETIL [Concomitant]
     Indication: PROPHYLAXIS AGAINST GRAFT VERSUS HOST DISEASE
     Dosage: 270 MG, UNK
     Route: 042
     Dates: start: 20090814, end: 20090912
  13. CYTOGAM [Concomitant]
     Indication: ANTIVIRAL PROPHYLAXIS
     Dosage: 3600 MG, UNK
     Route: 042
     Dates: start: 20090814, end: 20090821
  14. CYTOGAM [Concomitant]
     Dosage: 2400 MG, UNK
     Route: 042
     Dates: start: 20090825, end: 20090826
  15. CYTOGAM [Concomitant]
     Dosage: 4800 MG, UNK
     Route: 042
     Dates: start: 20090826, end: 20090912
  16. METHYLPREDNISOLONE [Concomitant]
     Indication: PROPHYLAXIS AGAINST GRAFT VERSUS HOST DISEASE
     Dosage: 90 MG, UNK
     Route: 042
     Dates: start: 20090827, end: 20090829
  17. METHYLPREDNISOLONE [Concomitant]
     Dosage: 100 MG, UNK
     Route: 042
     Dates: start: 20090829, end: 20090830
  18. METHYLPREDNISOLONE [Concomitant]
     Dosage: 4.5 MG, UNK
     Route: 042
     Dates: start: 20090831, end: 20090905
  19. METHYLPREDNISOLONE [Concomitant]
     Dosage: 2.5 MG, UNK
     Route: 042
     Dates: start: 20090905, end: 20090907
  20. METHYLPREDNISOLONE [Concomitant]
     Dosage: 18 MG, UNK
     Route: 042
     Dates: start: 20090911, end: 20090912

REACTIONS (5)
  - EMPHYSEMA [None]
  - PNEUMONITIS [None]
  - PNEUMOTHORAX SPONTANEOUS TENSION [None]
  - PULMONARY HYPERTENSION [None]
  - PULMONARY VENO-OCCLUSIVE DISEASE [None]
